FAERS Safety Report 11574849 (Version 2)
Quarter: 2015Q4

REPORT INFORMATION
  Report Type: Spontaneous
  Country: US (occurrence: US)
  Receive Date: 20150916
  Receipt Date: 20151027
  Transmission Date: 20160304
  Serious: No
  Sender: FDA-Public Use
  Company Number: US-ELI_LILLY_AND_COMPANY-US200911003538

PATIENT
  Sex: Female

DRUGS (6)
  1. CALCIUM ACETATE. [Concomitant]
     Active Substance: CALCIUM ACETATE
  2. MULTIVITAMIN [Concomitant]
     Active Substance: VITAMINS
  3. VITAMIN D3 [Concomitant]
     Active Substance: CHOLECALCIFEROL
  4. FORTEO [Suspect]
     Active Substance: TERIPARATIDE
     Dosage: UNK, UNK
  5. FORTEO [Suspect]
     Active Substance: TERIPARATIDE
  6. FORTEO [Suspect]
     Active Substance: TERIPARATIDE

REACTIONS (6)
  - Urine abnormality [Not Recovered/Not Resolved]
  - Insomnia [Not Recovered/Not Resolved]
  - Glomerular filtration rate abnormal [Unknown]
  - Crystal urine present [Not Recovered/Not Resolved]
  - Urine abnormality [Not Recovered/Not Resolved]
  - Renal disorder [Unknown]

NARRATIVE: CASE EVENT DATE: 2009
